FAERS Safety Report 6741269-8 (Version None)
Quarter: 2010Q2

REPORT INFORMATION
  Report Type: 
  Country: None (occurrence: None)
  Receive Date: 20100526
  Receipt Date: 20100526
  Transmission Date: 20101027
  Serious: Yes (Hospitalization)
  Sender: FDA-Public Use
  Company Number: None

PATIENT
  Age: 21 Month
  Sex: Female
  Weight: 10.4327 kg

DRUGS (4)
  1. CHILDREN'S TYLENOL SUSPENSION [Suspect]
     Indication: EAR INFECTION
     Dosage: 3-4 ML EVERY 4 - 10 HOURS PO
     Route: 048
     Dates: start: 20100101, end: 20100111
  2. CHILDREN'S TYLENOL SUSPENSION [Suspect]
     Indication: EAR INFECTION
     Dosage: 3-4 ML EVERY 4 - 10 HOURS PO
     Route: 048
     Dates: start: 20100408, end: 20100411
  3. CONCENTRATED TYLENOL INFANT DROPS [Concomitant]
  4. CHILDREN'S IBUPROFEN [Suspect]

REACTIONS (4)
  - GASTROINTESTINAL INFECTION [None]
  - OXYGEN SATURATION DECREASED [None]
  - PNEUMONIA [None]
  - PRODUCT QUALITY ISSUE [None]
